FAERS Safety Report 4801748-7 (Version None)
Quarter: 2005Q4

REPORT INFORMATION
  Report Type: 
  Country: None (occurrence: None)
  Receive Date: 20051014
  Receipt Date: 20051014
  Transmission Date: 20060501
  Serious: Yes (Hospitalization)
  Sender: FDA-Public Use
  Company Number: None

PATIENT
  Sex: Male
  Weight: 88.9 kg

DRUGS (4)
  1. PLAVIX [Suspect]
     Indication: COLON CANCER
     Dosage: 75MG  QDAY  PO
     Route: 048
  2. PLAVIX [Suspect]
     Indication: DEEP VEIN THROMBOSIS
     Dosage: 75MG  QDAY  PO
     Route: 048
  3. WARFARIN [Suspect]
     Indication: COLON CANCER
     Dosage: 2 MG   QDAY  PO
     Route: 048
  4. WARFARIN [Suspect]
     Indication: DEEP VEIN THROMBOSIS
     Dosage: 2 MG   QDAY  PO
     Route: 048

REACTIONS (1)
  - RECTAL HAEMORRHAGE [None]
